FAERS Safety Report 8533268 (Version 2)
Quarter: 2012Q4

REPORT INFORMATION
  Report Type: 
  Country: US (occurrence: US)
  Receive Date: 20120427
  Receipt Date: 20121108
  Transmission Date: 20130627
  Serious: Yes (Other)
  Sender: FDA-Public Use
  Company Number: US-BAYER-2012-040257

PATIENT
  Age: 23 Year
  Sex: Female

DRUGS (6)
  1. YAZ [Suspect]
     Indication: CONTRACEPTION
     Dosage: UNK
     Dates: start: 200901, end: 200909
  2. YASMIN [Suspect]
     Indication: CONTRACEPTION
     Dosage: UNK
     Dates: start: 200901, end: 200909
  3. OCELLA [Suspect]
  4. IBUPROFEN [Concomitant]
  5. ASPIRIN [Concomitant]
  6. LAMICTAL [Concomitant]
     Indication: BIPOLAR DISORDER

REACTIONS (8)
  - Deep vein thrombosis [None]
  - Injury [None]
  - Emotional distress [None]
  - Pain [None]
  - Injury [None]
  - Spider vein [None]
  - Varicose vein [None]
  - Rosacea [None]
